FAERS Safety Report 15968517 (Version 1)
Quarter: 2019Q1

REPORT INFORMATION
  Report Type: Spontaneous
  Country: US (occurrence: US)
  Receive Date: 20190215
  Receipt Date: 20190215
  Transmission Date: 20190418
  Serious: Yes (Other)
  Sender: FDA-Public Use
  Company Number: US-FRESENIUS KABI-FK201901657

PATIENT
  Age: 42 Year
  Sex: Female

DRUGS (4)
  1. CALCIUM GLUCONATE (MANUFACTURER UNKNOWN) [Suspect]
     Active Substance: CALCIUM GLUCONATE
     Indication: HUNGRY BONE SYNDROME
     Route: 042
  2. CALCITRIOL. [Suspect]
     Active Substance: CALCITRIOL
     Indication: HUNGRY BONE SYNDROME
     Route: 065
  3. SODIUM THIOSULFATE [Concomitant]
     Active Substance: SODIUM THIOSULFATE
     Indication: PRODUCT USED FOR UNKNOWN INDICATION
     Route: 042
  4. COLECALCIFEROL/CALCIUM CITRATE [Suspect]
     Active Substance: CALCIUM CITRATE\CHOLECALCIFEROL
     Indication: HUNGRY BONE SYNDROME
     Dosage: 315/250 MG
     Route: 048

REACTIONS (10)
  - Culture wound positive [None]
  - Alcaligenes infection [None]
  - Calciphylaxis [Recovered/Resolved]
  - Impaired healing [None]
  - Disease recurrence [None]
  - Condition aggravated [Recovered/Resolved]
  - Skin ulcer [None]
  - Skin mass [None]
  - Hyperparathyroidism tertiary [None]
  - Haemodialysis [None]
